FAERS Safety Report 10550743 (Version 1)
Quarter: 2014Q4

REPORT INFORMATION
  Report Type: Spontaneous
  Country: US (occurrence: None)
  Receive Date: 20141028
  Receipt Date: 20141028
  Transmission Date: 20150529
  Serious: Yes (Hospitalization)
  Sender: FDA-Public Use
  Company Number: None

PATIENT
  Age: 71 Year
  Sex: Female
  Weight: 77.11 kg

DRUGS (2)
  1. OMEGA 3 [Concomitant]
     Active Substance: OMEGA-3 FATTY ACIDS
  2. LISINOPRIL 20 MG TABLETS FOR PRINIVIL/ZESTNI LUPIN PHARMACY [Suspect]
     Active Substance: LISINOPRIL
     Indication: HYPERTENSION
     Dosage: BY MOUTH
     Dates: start: 20131226, end: 20141007

REACTIONS (7)
  - Headache [None]
  - Dizziness [None]
  - Feeling abnormal [None]
  - Panic reaction [None]
  - Tinnitus [None]
  - Abasia [None]
  - Blood pressure increased [None]

NARRATIVE: CASE EVENT DATE: 20141007
